FAERS Safety Report 11560301 (Version 1)
Quarter: 2015Q3

REPORT INFORMATION
  Report Type: Spontaneous
  Country: US (occurrence: US)
  Receive Date: 20150916
  Receipt Date: 20150916
  Transmission Date: 20151125
  Serious: No
  Sender: FDA-Public Use
  Company Number: US-ELI_LILLY_AND_COMPANY-US200809004196

PATIENT
  Sex: Female

DRUGS (2)
  1. DETROL [Concomitant]
     Active Substance: TOLTERODINE TARTRATE
  2. FORTEO [Suspect]
     Active Substance: TERIPARATIDE
     Indication: OSTEOPOROSIS
     Dosage: 20 UG, DAILY (1/D)

REACTIONS (2)
  - Blood calcium increased [Recovered/Resolved]
  - Vitamin D decreased [Recovered/Resolved]
